FAERS Safety Report 4745388-7 (Version None)
Quarter: 2005Q3

REPORT INFORMATION
  Report Type: 
  Country: None (occurrence: None)
  Receive Date: 20050815
  Receipt Date: 20050802
  Transmission Date: 20060218
  Serious: Yes (Hospitalization)
  Sender: FDA-Public Use
  Company Number: 5653

PATIENT
  Age: 84 Year
  Sex: Male

DRUGS (1)
  1. NITROGLYCERIN [Suspect]
     Indication: ANGINA PECTORIS
     Dosage: SIX SUBLINGUAL TABLETS :^TAKEN OVER A RELATIVELY SHORT PERIOD OF TIME.^
     Dates: start: 20050721

REACTIONS (5)
  - CARDIAC FAILURE CONGESTIVE [None]
  - CHEST PAIN [None]
  - HEADACHE [None]
  - PARAESTHESIA [None]
  - THERAPY NON-RESPONDER [None]
